FAERS Safety Report 6015891-0 (Version None)
Quarter: 2008Q4

REPORT INFORMATION
  Report Type: 
  Country: None (occurrence: None)
  Receive Date: 20081222
  Receipt Date: 20081216
  Transmission Date: 20090506
  Serious: Yes (Hospitalization)
  Sender: FDA-Public Use
  Company Number: B0543019A

PATIENT
  Age: 61 Year
  Sex: Female

DRUGS (6)
  1. MELPHALAN [Suspect]
  2. CYTARABINE [Suspect]
  3. ETOPOSIDE [Suspect]
  4. ALEMTUZUMAB [Suspect]
  5. CARMUSTINE [Suspect]
  6. CYCLOSPORINE [Suspect]
     Indication: PROPHYLAXIS AGAINST GRAFT VERSUS HOST DISEASE

REACTIONS (6)
  - COLLAPSE OF LUNG [None]
  - DYSPNOEA [None]
  - EPSTEIN-BARR VIRUS ASSOCIATED LYMPHOPROLIFERATIVE DISORDER [None]
  - EPSTEIN-BARR VIRUS INFECTION [None]
  - PULMONARY HILUM MASS [None]
  - PYREXIA [None]
